FAERS Safety Report 16182780 (Version 1)
Quarter: 2019Q2

REPORT INFORMATION
  Report Type: Spontaneous
  Country: BR (occurrence: BR)
  Receive Date: 20190411
  Receipt Date: 20190411
  Transmission Date: 20190711
  Serious: Yes (Other)
  Sender: FDA-Public Use
  Company Number: BR-ABBVIE-19K-020-2738155-00

PATIENT
  Sex: Female

DRUGS (2)
  1. MODULEN IBD [Concomitant]
     Active Substance: CARBOHYDRATES\FATTY ACIDS\MINERALS\PROTEIN\VITAMINS
     Indication: PRODUCT USED FOR UNKNOWN INDICATION
     Route: 065
  2. HUMIRA [Suspect]
     Active Substance: ADALIMUMAB
     Indication: CROHN^S DISEASE
     Route: 058

REACTIONS (7)
  - Tuberculosis [Unknown]
  - Sarcoidosis [Unknown]
  - Crohn^s disease [Unknown]
  - Uveitis [Unknown]
  - Lung disorder [Unknown]
  - Immunodeficiency [Unknown]
  - Inflammatory bowel disease [Unknown]
